FAERS Safety Report 26130665 (Version 1)
Quarter: 2025Q4

REPORT INFORMATION
  Report Type: Spontaneous
  Country: US (occurrence: None)
  Receive Date: 20251206
  Receipt Date: 20251206
  Transmission Date: 20260118
  Serious: Yes (Hospitalization)
  Sender: FDA-CTU
  Company Number: None

PATIENT
  Age: 65 Year
  Sex: Female
  Weight: 84.1 kg

DRUGS (10)
  1. CARBOPLATIN [Suspect]
     Active Substance: CARBOPLATIN
     Dates: end: 20130515
  2. TAXOL [Suspect]
     Active Substance: PACLITAXEL
     Dates: end: 20130522
  3. COLACE [Concomitant]
     Active Substance: DOCUSATE SODIUM
  4. COMPAZINE [Concomitant]
     Active Substance: PROCHLORPERAZINE MALEATE
  5. LOVENOX [Concomitant]
     Active Substance: ENOXAPARIN SODIUM
  6. MILK OF MAGNESIA [Concomitant]
     Active Substance: MAGNESIUM HYDROXIDE
  7. MOTRIN [Concomitant]
     Active Substance: IBUPROFEN
  8. SENNA TABS [Concomitant]
     Active Substance: SENNOSIDES A AND B
  9. Tyleol [Concomitant]
  10. ZOFRAN [Concomitant]
     Active Substance: ONDANSETRON HYDROCHLORIDE

REACTIONS (5)
  - Deep vein thrombosis [None]
  - Thrombocytopenia [None]
  - Hypokalaemia [None]
  - Diarrhoea [None]
  - Febrile neutropenia [None]

NARRATIVE: CASE EVENT DATE: 20130529
